FAERS Safety Report 8967908 (Version 1)
Quarter: 2012Q4

REPORT INFORMATION
  Report Type: 
  Country: US (occurrence: US)
  Receive Date: 20121218
  Receipt Date: 20121218
  Transmission Date: 20130627
  Serious: No
  Sender: FDA-Public Use
  Company Number: US-GLAXOSMITHKLINE-A0971165A

PATIENT
  Age: 66 Year
  Sex: Female

DRUGS (3)
  1. COREG CR [Suspect]
     Indication: CARDIOMEGALY
     Dosage: 10MG Per day
     Route: 048
     Dates: start: 20120316
  2. CALCIUM [Concomitant]
  3. MULTIVITAMIN [Concomitant]

REACTIONS (3)
  - Rash macular [Recovering/Resolving]
  - Fatigue [Unknown]
  - Dyspnoea [Unknown]
